FAERS Safety Report 18307700 (Version 4)
Quarter: 2021Q4

REPORT INFORMATION
  Report Type: Spontaneous
  Country: PL (occurrence: PL)
  Receive Date: 20200924
  Receipt Date: 20211217
  Transmission Date: 20220303
  Serious: Yes (Other)
  Sender: FDA-Public Use
  Company Number: PL-002147023-NVSC2020PL238589

PATIENT
  Age: 40 Year
  Sex: Female

DRUGS (10)
  1. CYTARABINE [Suspect]
     Active Substance: CYTARABINE
     Dosage: UNK (3G/2ML) (2 DOSES EVERY SECOND DAY 6 DOSES IN ALL)
     Route: 065
  2. CYTARABINE [Suspect]
     Active Substance: CYTARABINE
     Dosage: UNK
     Route: 065
  3. CYTARABINE [Suspect]
     Active Substance: CYTARABINE
     Dosage: UNK
     Route: 065
  4. CYTARABINE [Suspect]
     Active Substance: CYTARABINE
     Dosage: UNK
  5. RYDAPT [Suspect]
     Active Substance: MIDOSTAURIN
     Indication: Acute myeloid leukaemia
     Dosage: UNK
     Route: 065
     Dates: start: 202006
  6. RYDAPT [Suspect]
     Active Substance: MIDOSTAURIN
     Dosage: UNK
     Route: 065
     Dates: start: 202006
  7. DEXAMETHASONE [Concomitant]
     Active Substance: DEXAMETHASONE
     Dosage: 8 MG, QD
     Route: 065
  8. MIZODIN [Concomitant]
     Indication: Tremor
     Dosage: UNK
     Route: 065
  9. MIZODIN [Concomitant]
     Route: 065
  10. MIZODIN [Concomitant]
     Route: 065

REACTIONS (7)
  - Skin lesion inflammation [Not Recovered/Not Resolved]
  - Bone marrow failure [Unknown]
  - Skin discolouration [Not Recovered/Not Resolved]
  - Rash papular [Not Recovered/Not Resolved]
  - Staphylococcal bacteraemia [Unknown]
  - Pruritus [Not Recovered/Not Resolved]
  - Tremor [Recovering/Resolving]
